FAERS Safety Report 7433250-0 (Version None)
Quarter: 2011Q2

REPORT INFORMATION
  Report Type: 
  Country: None (occurrence: None)
  Receive Date: 20110422
  Receipt Date: 20110419
  Transmission Date: 20111010
  Serious: Yes (Other)
  Sender: FDA-Public Use
  Company Number: CHPA2011US05660

PATIENT
  Age: 39 Year
  Sex: Female
  Weight: 111.11 kg

DRUGS (1)
  1. 4 WAY MENTHOLATED NASAL SPRAY [Suspect]
     Indication: NASAL CONGESTION
     Dosage: UNK, QD
     Route: 045

REACTIONS (3)
  - DRUG DEPENDENCE [None]
  - NASAL DISCOMFORT [None]
  - INCORRECT DRUG ADMINISTRATION DURATION [None]
